FAERS Safety Report 11987596 (Version 1)
Quarter: 2020Q3

REPORT INFORMATION
  Report Type: Spontaneous
  Country: DE (occurrence: DE)
  Receive Date: 20160202
  Receipt Date: 20160202
  Transmission Date: 20201104
  Serious: Yes (Life-Threatening)
  Sender: FDA-Public Use
  Company Number: DE-AUROBINDO-AUR-APL-2016-00556

PATIENT
  Sex: Female
  Weight: 61 kg

DRUGS (4)
  1. ALENDRONIC ACID [Concomitant]
     Active Substance: ALENDRONIC ACID
     Indication: OSTEOPOROSIS
     Dosage: 70 MG, UNK
     Route: 048
     Dates: start: 20121024, end: 20130730
  2. INFLUSPLIT [Suspect]
     Active Substance: INFLUENZA VIRUS VACCINE
     Indication: IMMUNISATION
     Dosage: UNK
     Route: 030
     Dates: start: 20151012
  3. IBANDRONIC ACID. [Suspect]
     Active Substance: IBANDRONIC ACID
     Indication: OSTEOPOROSIS
     Dosage: 3 MG, UNK
     Route: 042
     Dates: start: 20140404, end: 20151012
  4. ILOMEDIN /00944801/ [Suspect]
     Active Substance: ILOPROST
     Indication: OSTEONECROSIS
     Dosage: UNK
     Route: 042
     Dates: start: 20130726, end: 20130730

REACTIONS (1)
  - Congestive cardiomyopathy [Unknown]
